FAERS Safety Report 8818153 (Version 2)
Quarter: 2012Q4

REPORT INFORMATION
  Report Type: 
  Country: BR (occurrence: BR)
  Receive Date: 20121001
  Receipt Date: 20121003
  Transmission Date: 20130627
  Serious: Yes (Other)
  Sender: FDA-Public Use
  Company Number: BR-BAYER-2012-101626

PATIENT
  Sex: Female

DRUGS (1)
  1. MAGNEVISTAN [Suspect]
     Route: 042

REACTIONS (2)
  - Dyspnoea [None]
  - Stridor [None]
